FAERS Safety Report 11748884 (Version 1)
Quarter: 2015Q4

REPORT INFORMATION
  Report Type: Spontaneous
  Country: KR (occurrence: US)
  Receive Date: 20151118
  Receipt Date: 20151118
  Transmission Date: 20160304
  Serious: Yes (Hospitalization)
  Sender: FDA-Public Use
  Company Number: KR-SCIEGEN PHARMACEUTICALS INC-2015SCILIT00008

PATIENT
  Age: 64 Year
  Sex: Female

DRUGS (2)
  1. CLOPIDOGREL [Suspect]
     Active Substance: CLOPIDOGREL BISULFATE
     Indication: PRODUCT USED FOR UNKNOWN INDICATION
     Dosage: 75 MG PER DAY
     Route: 065
  2. ASPIRIN. [Suspect]
     Active Substance: ASPIRIN
     Indication: PRODUCT USED FOR UNKNOWN INDICATION
     Dosage: 100 MG PER DAY
     Route: 065

REACTIONS (7)
  - Pyelonephritis acute [Unknown]
  - Drug resistance [None]
  - Cardiogenic shock [Unknown]
  - Vascular stent thrombosis [Unknown]
  - Chest pain [Not Recovered/Not Resolved]
  - Percutaneous coronary intervention [Unknown]
  - Drug ineffective [Unknown]
